FAERS Safety Report 8438915-X (Version None)
Quarter: 2012Q2

REPORT INFORMATION
  Report Type: 
  Country: None (occurrence: None)
  Receive Date: 20120615
  Receipt Date: 20120604
  Transmission Date: 20120825
  Serious: Yes (Death, Hospitalization, Other)
  Sender: FDA-Public Use
  Company Number: BE-ACCORD-013717

PATIENT
  Sex: Female

DRUGS (8)
  1. METHOTREXATE [Suspect]
     Indication: METASTATIC CHORIOCARCINOMA
     Dosage: ON DAY 8
     Route: 042
  2. ALLOPURINOL [Concomitant]
     Dosage: THRICE DAILY ON DAY 8 TO 10
  3. CARBOPLATIN [Suspect]
     Indication: METASTATIC CHORIOCARCINOMA
  4. NEUPOGEN [Concomitant]
  5. DACTINOMYCIN [Suspect]
     Indication: METASTATIC CHORIOCARCINOMA
     Dosage: ON DAY 8
     Route: 042
  6. CISPLATIN [Suspect]
     Indication: METASTATIC CHORIOCARCINOMA
     Dosage: ON DAY 1
     Route: 042
  7. LEUCOVORIN CALCIUM [Concomitant]
     Dosage: GIVEN AT EVERY 6 HOURS, STARTING 24 HOURS AFTER THE START OF METHOTREXATE INFUSION (DAY 9-10)
  8. ETOPOSIDE [Suspect]
     Indication: METASTATIC CHORIOCARCINOMA
     Dosage: ON DAY 1

REACTIONS (7)
  - SEPTIC EMBOLUS [None]
  - ENDOCARDITIS [None]
  - PANCYTOPENIA [None]
  - OTOTOXICITY [None]
  - NEUTROPENIC SEPSIS [None]
  - DIABETIC HYPEROSMOLAR COMA [None]
  - OFF LABEL USE [None]
